FAERS Safety Report 9050903 (Version 1)
Quarter: 2013Q1

REPORT INFORMATION
  Report Type: Spontaneous
  Country: FR (occurrence: FR)
  Receive Date: 20130205
  Receipt Date: 20130205
  Transmission Date: 20140127
  Serious: Yes (Hospitalization)
  Sender: FDA-Public Use
  Company Number: FR-PFIZER INC-2013037742

PATIENT
  Age: 39 Year
  Sex: Male

DRUGS (12)
  1. VFEND [Suspect]
     Dosage: 2 DF DAILY
     Route: 048
     Dates: end: 201212
  2. BACTRIM FORTE [Suspect]
     Dosage: 3 DF, WEEKLY
     Dates: end: 20121122
  3. INEXIUM [Suspect]
     Dosage: 20 MG, 1X/DAY
     Route: 048
     Dates: end: 20121122
  4. NEORAL [Concomitant]
     Dosage: 75 MG, 2X/DAY
  5. SOLUPRED [Concomitant]
     Dosage: 80 MG, ALTERNATE DAY
  6. MAGNESIUM [Concomitant]
     Dosage: UNK
  7. LEDERFOLIN [Concomitant]
     Dosage: 25 MG, WEEKLY
  8. ZELITREX [Concomitant]
     Dosage: 500 MG, 2X/DAY
  9. ORACILLINE [Concomitant]
     Dosage: 1 MILLIONIU, 1X/DAY
  10. URSOLVAN-200 [Concomitant]
     Dosage: 1 DF, 1X/DAY
  11. DEDROGYL [Concomitant]
     Dosage: 4 DROPS DAILY
  12. TAZOCILLINE [Concomitant]
     Dosage: UNK

REACTIONS (3)
  - Aplasia [Recovered/Resolved]
  - Agranulocytosis [Recovered/Resolved]
  - Pancytopenia [Recovered/Resolved]
